FAERS Safety Report 7763504-X (Version None)
Quarter: 2011Q3

REPORT INFORMATION
  Report Type: 
  Country: None (occurrence: None)
  Receive Date: 20110920
  Receipt Date: 20110914
  Transmission Date: 20111222
  Serious: Yes (Hospitalization)
  Sender: FDA-Public Use
  Company Number: CA-AMGEN-CANSP2011047567

PATIENT
  Age: 74 Year
  Sex: Female

DRUGS (15)
  1. EXELON [Concomitant]
     Dosage: 6 MG, BID
     Route: 048
  2. CALCIUM CARBONATE [Concomitant]
     Dosage: 500 MG, BID
     Route: 048
  3. SEROQUEL [Concomitant]
     Dosage: 50 MG, BID
     Route: 048
  4. SORBITOL [Concomitant]
     Dosage: 20 ML, QD
  5. ACETAMINOPHEN [Concomitant]
     Indication: PAIN
     Dosage: 500 MG, PRN
     Route: 048
  6. SEROQUEL [Concomitant]
     Dosage: 37.5 MG, QD
     Route: 048
  7. FLEET ENEMA                        /00129701/ [Concomitant]
     Dosage: UNK UNK, PRN
  8. GLUCOPHAGE [Concomitant]
     Indication: DIABETES MELLITUS
     Dosage: 250 MG, QD
     Route: 048
  9. SENOKOT [Concomitant]
     Dosage: 12 MG, QD
     Route: 048
  10. VITAMIN D [Concomitant]
     Dosage: 10000 IU, QWK
  11. NPLATE [Suspect]
     Indication: IDIOPATHIC THROMBOCYTOPENIC PURPURA
     Dosage: 60 MUG, QWK
     Route: 058
     Dates: start: 20110902
  12. CITALOPRAM HYDROBROMIDE [Concomitant]
     Dosage: 40 MG, QD
     Route: 048
  13. HALOPERIDOL [Concomitant]
     Indication: AGITATION
     Dosage: 0.5 MG, PRN
     Route: 048
  14. SYNTHROID [Concomitant]
     Dosage: 50 MUG, QD
     Route: 048
  15. MEMANTINE HYDROCHLORIDE [Concomitant]
     Dosage: 10 MG, BID
     Route: 048

REACTIONS (1)
  - HYPOGLYCAEMIA [None]
